FAERS Safety Report 19244431 (Version 1)
Quarter: 2021Q2

REPORT INFORMATION
  Report Type: Report from Study
  Country: US (occurrence: US)
  Receive Date: 20210511
  Receipt Date: 20210511
  Transmission Date: 20210717
  Serious: Yes (Hospitalization)
  Sender: FDA-Public Use
  Company Number: US-VERTEX PHARMACEUTICALS-2021-005678

PATIENT
  Age: 15 Year
  Sex: Male

DRUGS (17)
  1. FLOVENT [Concomitant]
     Active Substance: FLUTICASONE PROPIONATE
  2. XOPENEX [Concomitant]
     Active Substance: LEVALBUTEROL HYDROCHLORIDE
     Route: 055
  3. VITAMIN D3 [Concomitant]
     Active Substance: CHOLECALCIFEROL
  4. PAZEO [Concomitant]
     Active Substance: OLOPATADINE HYDROCHLORIDE
  5. ZYRTEC [Concomitant]
     Active Substance: CETIRIZINE HYDROCHLORIDE
  6. PREVACID [Concomitant]
     Active Substance: LANSOPRAZOLE
  7. ZOLOFT [Concomitant]
     Active Substance: SERTRALINE HYDROCHLORIDE
  8. TRIKAFTA [Suspect]
     Active Substance: ELEXACAFTOR\IVACAFTOR\TEZACAFTOR
     Indication: CYSTIC FIBROSIS
     Dosage: 2 ORANGE TABS (100MG ELEXA/50MG TEZAO/75MG IVA) AM; 1 BLUE TAB (150MG IVA) PM
     Route: 048
     Dates: start: 20191121
  9. PULMOZYME [Concomitant]
     Active Substance: DORNASE ALFA
  10. PATANOL [Concomitant]
     Active Substance: OLOPATADINE HYDROCHLORIDE
  11. METOPROLOL. [Concomitant]
     Active Substance: METOPROLOL
  12. SINGULAIR [Concomitant]
     Active Substance: MONTELUKAST SODIUM
  13. METHYLPHENIDATE. [Concomitant]
     Active Substance: METHYLPHENIDATE
  14. DYMISTA [Concomitant]
     Active Substance: AZELASTINE HYDROCHLORIDE\FLUTICASONE PROPIONATE
  15. SODIUM CHLORIDE. [Concomitant]
     Active Substance: SODIUM CHLORIDE
  16. MIRALAX [Concomitant]
     Active Substance: POLYETHYLENE GLYCOL 3350
  17. ADVAIR HFA [Concomitant]
     Active Substance: FLUTICASONE PROPIONATE\SALMETEROL XINAFOATE

REACTIONS (5)
  - Infection [Recovered/Resolved]
  - Vomiting [Recovered/Resolved]
  - Infective pulmonary exacerbation of cystic fibrosis [Recovered/Resolved]
  - Illness [Recovered/Resolved]
  - Pyrexia [Recovered/Resolved]

NARRATIVE: CASE EVENT DATE: 20210321
